FAERS Safety Report 18580117 (Version 4)
Quarter: 2022Q3

REPORT INFORMATION
  Report Type: Report from Study
  Country: CA (occurrence: CA)
  Receive Date: 20201204
  Receipt Date: 20220711
  Transmission Date: 20221027
  Serious: Yes (Hospitalization, Other)
  Sender: FDA-Public Use
  Company Number: CA-GLAXOSMITHKLINE-CA2020AMR237332

PATIENT

DRUGS (7)
  1. ALBUTEROL SULFATE [Suspect]
     Active Substance: ALBUTEROL SULFATE
     Indication: Product used for unknown indication
     Dosage: UNK
  2. NUCALA [Suspect]
     Active Substance: MEPOLIZUMAB
     Indication: Asthma
     Dosage: 100 MG, Z, EVERY 4 WEEKS
     Route: 058
     Dates: start: 20210104
  3. NUCALA [Suspect]
     Active Substance: MEPOLIZUMAB
     Indication: Asthma
     Dosage: 100 MG, Z, EVERY 4 WEEKS
     Route: 058
     Dates: start: 20210104, end: 20210528
  4. SYMBICORT [Suspect]
     Active Substance: BUDESONIDE\FORMOTEROL FUMARATE DIHYDRATE
     Indication: Product used for unknown indication
     Dosage: 200 UG, BID
  5. ALVESCO [Suspect]
     Active Substance: CICLESONIDE
     Indication: Product used for unknown indication
     Dosage: 200 UG, BID
  6. SPIRIVA [Suspect]
     Active Substance: TIOTROPIUM BROMIDE MONOHYDRATE
     Indication: Product used for unknown indication
     Dosage: 18 UG, BID
  7. PREDNISONE [Suspect]
     Active Substance: PREDNISONE
     Indication: Product used for unknown indication
     Dosage: UNK

REACTIONS (12)
  - Hospitalisation [Unknown]
  - Spinal fracture [Unknown]
  - Asthma [Unknown]
  - Full blood count abnormal [Unknown]
  - Nasal polyps [Unknown]
  - Sleep disorder due to a general medical condition [Unknown]
  - Loss of personal independence in daily activities [Unknown]
  - Dyspnoea [Unknown]
  - Wheezing [Unknown]
  - Fall [Unknown]
  - Therapy cessation [Unknown]
  - Therapeutic product effect incomplete [Unknown]
